FAERS Safety Report 21271038 (Version 1)
Quarter: 2022Q3

REPORT INFORMATION
  Report Type: Report from Study
  Country: MX (occurrence: MX)
  Receive Date: 20220830
  Receipt Date: 20220830
  Transmission Date: 20221027
  Serious: Yes (Other)
  Sender: FDA-Public Use
  Company Number: MX-AMGEN-MEXSL2021188842

PATIENT
  Age: 56 Year
  Sex: Female

DRUGS (1)
  1. REPATHA [Suspect]
     Active Substance: EVOLOCUMAB
     Indication: Plasma cell myeloma
     Dosage: 140 MILLIGRAM, Q2WK
     Route: 065
     Dates: end: 202111

REACTIONS (4)
  - Skin necrosis [Unknown]
  - Dermatitis [Unknown]
  - Blister [Unknown]
  - Off label use [Unknown]
